FAERS Safety Report 24909120 (Version 1)
Quarter: 2025Q1

REPORT INFORMATION
  Report Type: Report from Study
  Country: US (occurrence: US)
  Receive Date: 20250131
  Receipt Date: 20250131
  Transmission Date: 20250408
  Serious: Yes (Death, Other)
  Sender: ROCHE
  Company Number: US-ROCHE-10000193146

PATIENT

DRUGS (4)
  1. OBINUTUZUMAB [Suspect]
     Active Substance: OBINUTUZUMAB
     Indication: Chronic lymphocytic leukaemia
     Route: 065
  2. OBINUTUZUMAB [Suspect]
     Active Substance: OBINUTUZUMAB
     Indication: Lymphocytic lymphoma
  3. VENETOCLAX [Suspect]
     Active Substance: VENETOCLAX
     Indication: Chronic lymphocytic leukaemia
     Route: 065
  4. VENETOCLAX [Suspect]
     Active Substance: VENETOCLAX
     Indication: Lymphocytic lymphoma

REACTIONS (9)
  - Infection [Unknown]
  - Cytopenia [Fatal]
  - Back pain [Unknown]
  - Metastasis [Unknown]
  - Liver function test increased [Unknown]
  - Lung neoplasm malignant [Fatal]
  - COVID-19 [Fatal]
  - Tumour lysis syndrome [Recovered/Resolved]
  - Cardiac arrest [Fatal]
